FAERS Safety Report 8096948-X (Version None)
Quarter: 2012Q1

REPORT INFORMATION
  Report Type: 
  Country: None (occurrence: None)
  Receive Date: 20120129
  Receipt Date: 20111212
  Transmission Date: 20120608
  Serious: No
  Sender: FDA-Public Use
  Company Number: US-ABBOTT-11P-163-0842054-00

PATIENT
  Age: 51 Year
  Sex: Male

DRUGS (7)
  1. SULFASALAZINE [Concomitant]
     Indication: PRODUCT USED FOR UNKNOWN INDICATION
  2. ACETAMINOPHEN [Concomitant]
     Indication: PAIN
     Dosage: ONCE EVERY SIX HOURS AS NEEDED
  3. OXYCODONE HCL [Concomitant]
     Indication: PAIN
     Dosage: EVERY THREE TO FOUR HOURS AS NEEDED
  4. HUMIRA [Suspect]
     Indication: COLITIS ULCERATIVE
     Dates: start: 20110712
  5. FLUOXETINE [Concomitant]
     Indication: PRODUCT USED FOR UNKNOWN INDICATION
  6. NUVIGIL [Concomitant]
     Indication: PRODUCT USED FOR UNKNOWN INDICATION
  7. FLUTICASONE PROPIONATE [Concomitant]
     Indication: PRODUCT USED FOR UNKNOWN INDICATION
     Dosage: ONE SPRAY EACH NOSTRIL, DAILY

REACTIONS (6)
  - PAIN [None]
  - PARAESTHESIA [None]
  - GAIT DISTURBANCE [None]
  - BACK PAIN [None]
  - ARTHRALGIA [None]
  - HYPOAESTHESIA [None]
